FAERS Safety Report 6990495-1 (Version None)
Quarter: 2010Q3

REPORT INFORMATION
  Report Type: 
  Country: None (occurrence: None)
  Receive Date: 20100916
  Receipt Date: 20100624
  Transmission Date: 20110219
  Serious: Yes (Other)
  Sender: FDA-Public Use
  Company Number: US-PFIZER INC-2010079454

PATIENT
  Sex: Female
  Weight: 58.05 kg

DRUGS (3)
  1. LYRICA [Suspect]
     Indication: PAIN IN JAW
     Dosage: 75 MG, 2X/DAY
     Route: 048
     Dates: start: 20100611, end: 20100618
  2. NEURONTIN [Suspect]
     Indication: PAIN IN JAW
     Dosage: UNK
     Route: 048
  3. ASCORBIC ACID [Concomitant]
     Dosage: UNK

REACTIONS (11)
  - ASTHENIA [None]
  - BONE PAIN [None]
  - BREAST TENDERNESS [None]
  - DYSMENORRHOEA [None]
  - EAR PAIN [None]
  - HYPERAESTHESIA [None]
  - HYPOAESTHESIA [None]
  - MASTICATION DISORDER [None]
  - MUSCULAR WEAKNESS [None]
  - PAIN IN JAW [None]
  - PARAESTHESIA [None]
